FAERS Safety Report 8699955 (Version 2)
Quarter: 2012Q4

REPORT INFORMATION
  Report Type: 
  Country: US (occurrence: US)
  Receive Date: 20120802
  Receipt Date: 20121214
  Transmission Date: 20130627
  Serious: No
  Sender: FDA-Public Use
  Company Number: US-ASTRAZENECA-2012SE43119

PATIENT
  Age: 81 Year
  Sex: Female

DRUGS (3)
  1. NEXIUM [Suspect]
     Route: 048
  2. CRESTOR [Suspect]
     Route: 048
  3. NEUROPATHY MEDICATION [Concomitant]

REACTIONS (6)
  - Local swelling [Unknown]
  - Infection [Unknown]
  - Toothache [Unknown]
  - Malaise [Unknown]
  - Intentional drug misuse [Unknown]
  - Intentional drug misuse [Unknown]
